FAERS Safety Report 7296895-7 (Version None)
Quarter: 2011Q1

REPORT INFORMATION
  Report Type: 
  Country: None (occurrence: None)
  Receive Date: 20110204
  Receipt Date: 20110121
  Transmission Date: 20110831
  Serious: Yes (Death)
  Sender: FDA-Public Use
  Company Number: JP-2011-10008

PATIENT
  Age: 80 Year
  Sex: Male
  Weight: 52.5 kg

DRUGS (10)
  1. ACARDI (PIMOBENDAN) CAPSULE [Concomitant]
  2. ENALAPRIL MALEATE [Concomitant]
  3. ANCARON (AMIODARONE HYDROCHLORIDE) TABLET [Concomitant]
  4. LASIX /00032601/ (FUROSEMIDE) INJECTION [Concomitant]
  5. DOBUTAMINE HCL (DOBUTAMINE HYDROCHLORIDE) INJECTION [Concomitant]
  6. SAMSCA [Suspect]
     Indication: CARDIAC FAILURE
     Dosage: 7.5 MG MILLIGRAM(S), QD, ORAL, 15 MG MILLIGRAM(S), QD, ORAL
     Route: 048
     Dates: start: 20101225, end: 20110103
  7. SAMSCA [Suspect]
     Indication: CARDIAC FAILURE
     Dosage: 7.5 MG MILLIGRAM(S), QD, ORAL, 15 MG MILLIGRAM(S), QD, ORAL
     Route: 048
     Dates: start: 20101224, end: 20101224
  8. ALDACTONE [Concomitant]
  9. LANIRAPID (METILDIGOXIN) TABLET [Concomitant]
  10. SIGMART (NICORANDIL) TABLET [Concomitant]

REACTIONS (5)
  - PNEUMONIA ASPIRATION [None]
  - DRUG INEFFECTIVE [None]
  - PLEURAL EFFUSION [None]
  - BLOOD PRESSURE SYSTOLIC DECREASED [None]
  - BLOOD UREA INCREASED [None]
